FAERS Safety Report 5275799-5 (Version None)
Quarter: 2007Q1

REPORT INFORMATION
  Report Type: 
  Country: None (occurrence: None)
  Receive Date: 20070326
  Receipt Date: 20070316
  Transmission Date: 20070707
  Serious: Yes (Hospitalization)
  Sender: FDA-Public Use
  Company Number: DE-GLAXOSMITHKLINE-B0463205A

PATIENT
  Age: 71 Year
  Sex: Male
  Weight: 75 kg

DRUGS (10)
  1. TOPOTECAN [Suspect]
     Dosage: 1MGM2 SEE DOSAGE TEXT
     Route: 042
     Dates: start: 20060313, end: 20060317
  2. CISPLATIN [Suspect]
     Dosage: 75MGM2 SEE DOSAGE TEXT
     Route: 042
     Dates: start: 20060317, end: 20060317
  3. ASPIRIN [Concomitant]
     Indication: PROPHYLAXIS
     Dosage: 100MG PER DAY
     Route: 048
  4. SIMVASTATIN [Concomitant]
     Dosage: 40MG PER DAY
     Route: 048
  5. VERAHEXAL [Concomitant]
     Dosage: 120MG PER DAY
     Route: 048
  6. ALLOPURINOL [Concomitant]
     Indication: PROPHYLAXIS
     Dosage: 300MG PER DAY
     Route: 048
  7. SPIRIVA [Concomitant]
     Dosage: 18MG PER DAY
     Route: 055
  8. FUROSEMIDE [Concomitant]
     Dosage: 40MG PER DAY
     Route: 048
  9. VIANI [Concomitant]
     Dosage: 2ML PER DAY
     Route: 055
  10. AMITRIPTYLINE HCL [Concomitant]
     Indication: DEPRESSION
     Dosage: 50MG PER DAY
     Route: 048

REACTIONS (1)
  - EPISTAXIS [None]
